FAERS Safety Report 9237500 (Version 1)
Quarter: 2013Q2

REPORT INFORMATION
  Report Type: Spontaneous
  Country: US (occurrence: US)
  Receive Date: 20130417
  Receipt Date: 20130417
  Transmission Date: 20140414
  Serious: Yes (Other)
  Sender: FDA-Public Use
  Company Number: US-AMGEN-USASP2013025501

PATIENT
  Age: 41 Year
  Sex: Female

DRUGS (3)
  1. ENBREL [Suspect]
     Indication: ANKYLOSING SPONDYLITIS
     Dosage: 50 MG, QWK
     Dates: start: 20121025, end: 201212
  2. METHOTREXATE [Concomitant]
     Dosage: 20 MG, QWK
     Dates: start: 201209
  3. SIMPONI [Concomitant]
     Dosage: UNK
     Dates: start: 201301

REACTIONS (7)
  - Urticaria [Recovered/Resolved]
  - Gingival discolouration [Recovered/Resolved]
  - Chest discomfort [Recovered/Resolved]
  - Joint swelling [Recovered/Resolved]
  - Hypersensitivity [Recovered/Resolved]
  - Arthralgia [Not Recovered/Not Resolved]
  - Injection site pain [Recovered/Resolved]
